FAERS Safety Report 6649736-2 (Version None)
Quarter: 2010Q1

REPORT INFORMATION
  Report Type: 
  Country: None (occurrence: None)
  Receive Date: 20100324
  Receipt Date: 20100324
  Transmission Date: 20100710
  Serious: Yes (Hospitalization)
  Sender: FDA-Public Use
  Company Number: None

PATIENT
  Age: 79 Year
  Sex: Male

DRUGS (2)
  1. GLIPIZIDE [Suspect]
     Indication: DIABETES MELLITUS
     Dosage: 10 MG EVERY DAY PO
     Route: 048
     Dates: start: 20100101, end: 20100316
  2. INSULIN [Suspect]
     Indication: DIABETES MELLITUS
     Dosage: 40 UNITS AM IM
     Route: 030
     Dates: start: 20100101

REACTIONS (2)
  - CONVULSION [None]
  - HYPOGLYCAEMIA [None]
